FAERS Safety Report 7756505-9 (Version None)
Quarter: 2011Q3

REPORT INFORMATION
  Report Type: 
  Country: None (occurrence: None)
  Receive Date: 20110916
  Receipt Date: 20110906
  Transmission Date: 20111222
  Serious: Yes (Life-Threatening, Other)
  Sender: FDA-Public Use
  Company Number: US-ELI_LILLY_AND_COMPANY-US201005000082

PATIENT
  Sex: Female

DRUGS (4)
  1. FORTEO [Suspect]
     Dosage: 20 UG, DAILY (1/D)
  2. FORTEO [Suspect]
     Dosage: 20 UG, DAILY (1/D)
  3. FORTEO [Suspect]
     Indication: OSTEOPOROSIS
     Dosage: 20 UG, DAILY (1/D)
     Dates: start: 20100201
  4. FORTEO [Suspect]
     Dosage: 20 UG, DAILY (1/D)

REACTIONS (27)
  - VISUAL ACUITY REDUCED [None]
  - FATIGUE [None]
  - CARDIAC ARREST [None]
  - CATARACT [None]
  - MIDDLE INSOMNIA [None]
  - ASTHENIA [None]
  - INTERVERTEBRAL DISC DEGENERATION [None]
  - MENISCUS LESION [None]
  - POSTURE ABNORMAL [None]
  - GAIT DISTURBANCE [None]
  - HEAD DISCOMFORT [None]
  - LIMB INJURY [None]
  - PAIN [None]
  - NERVE BLOCK [None]
  - MUSCULOSKELETAL STIFFNESS [None]
  - HEAD INJURY [None]
  - CONSTIPATION [None]
  - KNEE ARTHROPLASTY [None]
  - RESPIRATORY DISORDER [None]
  - VISUAL IMPAIRMENT [None]
  - FALL [None]
  - JOINT INJURY [None]
  - ARTHRALGIA [None]
  - BODY HEIGHT DECREASED [None]
  - TENDON INJURY [None]
  - DYSSTASIA [None]
  - MUSCLE SPASMS [None]
